FAERS Safety Report 4523692-5 (Version None)
Quarter: 2004Q4

REPORT INFORMATION
  Report Type: 
  Country: None (occurrence: None)
  Receive Date: 20041210
  Receipt Date: 20041101
  Transmission Date: 20050328
  Serious: Yes (Other)
  Sender: FDA-Public Use
  Company Number: GB-GLAXOSMITHKLINE-B0350060A

PATIENT
  Age: 59 Year
  Sex: Female
  Weight: 74 kg

DRUGS (4)
  1. AVANDIA [Suspect]
     Indication: DIABETES MELLITUS NON-INSULIN-DEPENDENT
     Dosage: 8MG PER DAY
     Route: 048
     Dates: start: 20020731
  2. GLIMEPIRIDE [Concomitant]
  3. METFORMIN HCL [Concomitant]
     Dosage: 850MG THREE TIMES PER DAY
  4. FLUVASTATIN [Concomitant]

REACTIONS (2)
  - ANAEMIA [None]
  - MICROCYTOSIS [None]
